FAERS Safety Report 6639554-3 (Version None)
Quarter: 2010Q1

REPORT INFORMATION
  Report Type: 
  Country: None (occurrence: None)
  Receive Date: 20100318
  Receipt Date: 20100312
  Transmission Date: 20100710
  Serious: Yes (Death, Hospitalization, Other)
  Sender: FDA-Public Use
  Company Number: CH-JNJFOC-20100303444

PATIENT
  Age: 84 Year
  Sex: Female

DRUGS (11)
  1. RISPERDAL [Suspect]
     Indication: DEPRESSION
     Route: 065
  2. RISPERDAL [Suspect]
     Route: 065
  3. AMISULPRIDE [Suspect]
     Indication: ACUTE PSYCHOSIS
     Route: 065
  4. AMISULPRIDE [Suspect]
     Route: 065
  5. CLOZAPINE [Suspect]
     Indication: ACUTE PSYCHOSIS
     Route: 065
  6. CITALOPRAM HYDROBROMIDE [Suspect]
     Indication: ACUTE PSYCHOSIS
     Route: 065
  7. VESICARE [Concomitant]
     Indication: DRUG USE FOR UNKNOWN INDICATION
     Route: 048
  8. DISTRANEURIN [Concomitant]
     Indication: DRUG USE FOR UNKNOWN INDICATION
     Dosage: AS NECESSARY
     Route: 048
  9. DAFALGAN [Concomitant]
     Indication: DRUG USE FOR UNKNOWN INDICATION
     Route: 048
  10. LAXOBERON [Concomitant]
     Indication: DRUG USE FOR UNKNOWN INDICATION
     Dosage: 10 GTT DROPS
     Route: 048
  11. NEXIUM [Concomitant]
     Indication: DRUG USE FOR UNKNOWN INDICATION
     Route: 048

REACTIONS (5)
  - DRUG INEFFECTIVE [None]
  - MYOCARDIAL INFARCTION [None]
  - PNEUMONIA ASPIRATION [None]
  - THROMBOTIC STROKE [None]
  - URINARY INCONTINENCE [None]
